FAERS Safety Report 8319996-0 (Version None)
Quarter: 2012Q2

REPORT INFORMATION
  Report Type: 
  Country: None (occurrence: None)
  Receive Date: 20120427
  Receipt Date: 20120419
  Transmission Date: 20120825
  Serious: Yes (Other)
  Sender: FDA-Public Use
  Company Number: CA-BAXTER-2011BH040415

PATIENT
  Age: 9 Year
  Sex: Male

DRUGS (1)
  1. GAMMAGARD LIQUID [Suspect]
     Route: 065
     Dates: start: 20110207, end: 20110208

REACTIONS (5)
  - CELLULITIS [None]
  - HYPERSENSITIVITY [None]
  - PYREXIA [None]
  - NAUSEA [None]
  - VOMITING [None]
